FAERS Safety Report 11628979 (Version 2)
Quarter: 2015Q4

REPORT INFORMATION
  Report Type: Spontaneous
  Country: GR (occurrence: GR)
  Receive Date: 20151014
  Receipt Date: 20151112
  Transmission Date: 20160304
  Serious: Yes (Other)
  Sender: FDA-Public Use
  Company Number: GR-HQ SPECIALTY-GR-2015INT000584

PATIENT

DRUGS (6)
  1. ANTIBIOTICS [Concomitant]
     Active Substance: UNSPECIFIED INGREDIENT
     Indication: PROPHYLAXIS
     Dosage: UNK, ON DAY 5 OF EACH CYCLE FOR 10 DAYS
  2. 5-FLUOROURACIL                     /00098801/ [Suspect]
     Active Substance: FLUOROURACIL
     Indication: SQUAMOUS CELL CARCINOMA OF HEAD AND NECK
     Dosage: 1000 MG/M2 /DAY ON DAYS 1-4 OF 21 DAY CYCLE, AS A CONTINUOUS 24 HOUR INFUSION
  3. DEXAMETHASONE. [Concomitant]
     Active Substance: DEXAMETHASONE
     Indication: PROPHYLAXIS
     Dosage: UNK, ON DAY 5 OF EACH CYCLE FOR 10 DAYS
  4. CETUXIMAB [Suspect]
     Active Substance: CETUXIMAB
     Indication: SQUAMOUS CELL CARCINOMA OF HEAD AND NECK
     Dosage: 500 MG/M2 ON DAY 1 OF 21 DAY CYCLE, THREE WEEKLY
  5. CISPLATIN. [Suspect]
     Active Substance: CISPLATIN
     Indication: SQUAMOUS CELL CARCINOMA OF HEAD AND NECK
     Dosage: 75 MG/M2, DAY 1 OF 21 DAY CYCLE, AS  A 4-H INFUSION
  6. DOCETAXEL. [Suspect]
     Active Substance: DOCETAXEL
     Indication: SQUAMOUS CELL CARCINOMA OF HEAD AND NECK
     Dosage: 75 MG/M2, ON DAY 1 OF 21 DAY CYCLE, ONE HOUR INFUSION

REACTIONS (2)
  - Cardiotoxicity [Unknown]
  - Myocardial ischaemia [Unknown]
